FAERS Safety Report 4835343-0 (Version None)
Quarter: 2005Q4

REPORT INFORMATION
  Report Type: 
  Country: None (occurrence: None)
  Receive Date: 20051114
  Receipt Date: 20051108
  Transmission Date: 20060501
  Serious: Yes (Death, Hospitalization)
  Sender: FDA-Public Use
  Company Number: 23894

PATIENT
  Age: 54 Year
  Sex: Male

DRUGS (2)
  1. NIASPAN [Suspect]
     Indication: BLOOD CHOLESTEROL INCREASED
     Dates: start: 20010101, end: 20010101
  2. ZOCOR [Concomitant]

REACTIONS (2)
  - PANCREATIC CARCINOMA [None]
  - SPLENIC RUPTURE [None]
